FAERS Safety Report 25525637 (Version 1)
Quarter: 2025Q3

REPORT INFORMATION
  Report Type: Spontaneous
  Country: EU (occurrence: EU)
  Receive Date: 20250707
  Receipt Date: 20250707
  Transmission Date: 20251021
  Serious: Yes (Life-Threatening)
  Sender: FRESENIUS KABI
  Company Number: None

PATIENT
  Age: 67 Year
  Sex: Male
  Weight: 104 kg

DRUGS (18)
  1. PROPOFOL [Suspect]
     Active Substance: PROPOFOL
     Indication: Induction of anaesthesia
     Route: 042
     Dates: start: 20250528, end: 20250528
  2. ROCURONIUM BROMIDE [Suspect]
     Active Substance: ROCURONIUM BROMIDE
     Indication: Induction of anaesthesia
     Route: 042
     Dates: start: 20250528, end: 20250528
  3. DROPERIDOL [Suspect]
     Active Substance: DROPERIDOL
     Indication: Induction of anaesthesia
     Route: 042
     Dates: start: 20250528, end: 20250528
  4. SUFENTANIL [Suspect]
     Active Substance: SUFENTANIL
     Indication: Induction of anaesthesia
     Route: 042
     Dates: start: 20250528, end: 20250528
  5. KETAMINE HYDROCHLORIDE [Suspect]
     Active Substance: KETAMINE HYDROCHLORIDE
     Indication: Induction of anaesthesia
     Route: 042
     Dates: start: 20250528, end: 20250528
  6. DEXAMETHASONE [Suspect]
     Active Substance: DEXAMETHASONE
     Indication: Induction of anaesthesia
     Route: 042
     Dates: start: 20250528, end: 20250528
  7. CLOPIDOGREL (HYDROCHLORIDE) [CLOPIDOGREL (HYDROCHLORIDE)] [Concomitant]
     Indication: Product used for unknown indication
  8. METFORMIN [Concomitant]
     Active Substance: METFORMIN HYDROCHLORIDE
     Indication: Product used for unknown indication
  9. LANTUS [INSULIN GLARGINE ((BACTERIA/ESCHERICHIA COLI))] [Concomitant]
     Indication: Product used for unknown indication
  10. NOVORAPID [INSULIN ASPART ((YEAST/SACCHAROMYCES CEREVISIAE))] [Concomitant]
     Indication: Product used for unknown indication
  11. ATORVASTATIN [Concomitant]
     Active Substance: ATORVASTATIN
     Indication: Product used for unknown indication
  12. EZETIMIBE [Concomitant]
     Active Substance: EZETIMIBE
     Indication: Product used for unknown indication
  13. FUROSEMIDE [Concomitant]
     Active Substance: FUROSEMIDE
     Indication: Product used for unknown indication
  14. SPIRONOLACTONE [SPIRONOLACTONE] [Concomitant]
     Indication: Product used for unknown indication
  15. PAROXETINE (CHLORIDE HYDRATE) ANHYDRATE [Concomitant]
     Indication: Product used for unknown indication
  16. DUROGESIC [FENTANYL] [Concomitant]
     Indication: Product used for unknown indication
  17. SPASFON [PHLOROGLUCINOL (TRIMETHYL ETHER OF), PHYLOROGLUCINOL HYDRATE] [Concomitant]
     Indication: Product used for unknown indication
  18. RACECADOTRIL [RACECADOTRIL] [Concomitant]
     Indication: Product used for unknown indication

REACTIONS (1)
  - Anaphylactic shock [Recovered/Resolved]

NARRATIVE: CASE EVENT DATE: 20250528
